FAERS Safety Report 23883386 (Version 1)
Quarter: 2024Q2

REPORT INFORMATION
  Report Type: Spontaneous
  Country: US (occurrence: US)
  Receive Date: 20240522
  Receipt Date: 20240522
  Transmission Date: 20240716
  Serious: Yes (Hospitalization, Other)
  Sender: FDA-Public Use
  Company Number: US-ROCHE-2385009

PATIENT
  Age: 70 Year
  Sex: Female

DRUGS (11)
  1. CAPECITABINE [Suspect]
     Active Substance: CAPECITABINE
     Indication: Colon cancer
     Route: 048
  2. ESBRIET [Suspect]
     Active Substance: PIRFENIDONE
     Indication: Idiopathic interstitial pneumonia
     Dosage: TAKE 1 TABLET BY MOUTH 3 TIMES A DAY?SUBSEQUENT: THERAPY START DATED : 15/MAR/2024?TIME INTERVAL...
     Route: 048
     Dates: start: 20240105, end: 20240315
  3. ESBRIET [Suspect]
     Active Substance: PIRFENIDONE
     Indication: Idiopathic pulmonary fibrosis
     Dosage: TAKE 1 TABLET BY MOUTH 3 TIMES A DAY?SUBSEQUENT: THERAPY START DATED : 15/MAR/2024?TIME INTERVAL...
     Route: 048
     Dates: start: 20240105, end: 20240315
  4. ESBRIET [Suspect]
     Active Substance: PIRFENIDONE
     Indication: Fibromyalgia
     Dosage: TAKE 1 TABLET BY MOUTH 3 TIMES A DAY?SUBSEQUENT: THERAPY START DATED : 15/MAR/2024?TIME INTERVAL...
     Route: 048
     Dates: start: 20240105, end: 20240315
  5. XARELTO [Concomitant]
     Active Substance: RIVAROXABAN
     Indication: Thrombosis
  6. PROVENTIL HFA [Concomitant]
     Active Substance: ALBUTEROL SULFATE
  7. ASPIRIN [Concomitant]
     Active Substance: ASPIRIN
  8. RHINOCORT AQUA [Concomitant]
     Active Substance: BUDESONIDE
  9. SYNTHROID [Concomitant]
     Active Substance: LEVOTHYROXINE SODIUM
  10. SEROQUEL [Concomitant]
     Active Substance: QUETIAPINE FUMARATE
  11. ZOCOR [Concomitant]
     Active Substance: SIMVASTATIN

REACTIONS (9)
  - Chronic respiratory failure [Unknown]
  - Pulmonary embolism [Unknown]
  - Pulmonary thrombosis [Unknown]
  - Fibromyalgia [Unknown]
  - Rhinorrhoea [Not Recovered/Not Resolved]
  - Off label use [Unknown]
  - Lacrimation increased [Unknown]
  - Abdominal discomfort [Unknown]
  - Cough [Unknown]
